FAERS Safety Report 5518042-1 (Version None)
Quarter: 2007Q4

REPORT INFORMATION
  Report Type: 
  Country: None (occurrence: None)
  Receive Date: 20071115
  Receipt Date: 20071108
  Transmission Date: 20080405
  Serious: Yes (Life-Threatening, Hospitalization, Other)
  Sender: FDA-Public Use
  Company Number: ES-BAYER-200711344GDS

PATIENT
  Age: 64 Year
  Sex: Male
  Weight: 89 kg

DRUGS (21)
  1. VARDENAFIL [Suspect]
     Indication: ERECTILE DYSFUNCTION
     Route: 048
     Dates: start: 20070302, end: 20070302
  2. VARDENAFIL [Suspect]
     Route: 048
     Dates: start: 20070301, end: 20070301
  3. VARDENAFIL [Suspect]
     Route: 048
     Dates: start: 20070217, end: 20070217
  4. VARDENAFIL [Suspect]
     Route: 048
     Dates: start: 20070203, end: 20070203
  5. VARDENAFIL [Suspect]
     Route: 048
     Dates: start: 20070127, end: 20070127
  6. METFORMIN HCL [Concomitant]
     Indication: DIABETES MELLITUS
     Route: 065
     Dates: start: 20060203
  7. GEMFIBROZIL [Concomitant]
     Indication: HYPERLIPIDAEMIA
     Route: 065
     Dates: start: 20070109
  8. CLAVERSAL [Concomitant]
     Indication: CROHN'S DISEASE
     Route: 065
     Dates: start: 20060921
  9. DIOVAN [Concomitant]
     Indication: HYPERTENSION
     Route: 065
     Dates: start: 20060215
  10. OMEPRAZOLE [Concomitant]
     Indication: CROHN'S DISEASE
     Route: 048
     Dates: start: 20060726
  11. VALSARTAN [Concomitant]
     Indication: DRUG USE FOR UNKNOWN INDICATION
  12. TIMOLOL MALEATE [Concomitant]
     Indication: GLAUCOMA
  13. PARACETAMOL [Concomitant]
     Indication: NECK PAIN
     Route: 065
     Dates: start: 20061213, end: 20061217
  14. PARACETAMOL [Concomitant]
     Route: 065
     Dates: start: 20061201, end: 20061204
  15. RINELON [Concomitant]
     Indication: CONJUNCTIVITIS
     Route: 065
     Dates: start: 20061213, end: 20061217
  16. TOBREX [Concomitant]
     Indication: CONJUNCTIVITIS
     Dosage: UNIT DOSE: 0.3 %
     Route: 065
     Dates: start: 20061213, end: 20061217
  17. ACETYLSALICYLIC ACID SRT [Concomitant]
     Indication: ANGINA PECTORIS
     Route: 065
     Dates: start: 20070305
  18. ATENOLOL [Concomitant]
     Indication: ANGINA PECTORIS
     Route: 065
     Dates: start: 20070305
  19. MINITRAN [Concomitant]
     Indication: ANGINA PECTORIS
     Route: 065
     Dates: start: 20070305, end: 20070321
  20. CAFINITRINA [Concomitant]
     Indication: ANGINA PECTORIS
     Route: 065
     Dates: start: 20070305
  21. HEMORRANE 1% [Concomitant]
     Indication: CROHN'S DISEASE
     Route: 065
     Dates: start: 20060921

REACTIONS (2)
  - ANGINA PECTORIS [None]
  - ANGINA UNSTABLE [None]
